FAERS Safety Report 8292094-0 (Version None)
Quarter: 2012Q2

REPORT INFORMATION
  Report Type: 
  Country: None (occurrence: None)
  Receive Date: 20120417
  Receipt Date: 20110922
  Transmission Date: 20120825
  Serious: No
  Sender: FDA-Public Use
  Company Number: US-ASTRAZENECA-2011SE57334

PATIENT
  Age: 54 Year
  Sex: Male

DRUGS (2)
  1. NEXIUM [Suspect]
     Route: 048
  2. ALBUTEROL [Concomitant]

REACTIONS (5)
  - CHEST DISCOMFORT [None]
  - RASH [None]
  - DRUG DOSE OMISSION [None]
  - DYSPEPSIA [None]
  - NASOPHARYNGITIS [None]
